FAERS Safety Report 4852496-9 (Version None)
Quarter: 2005Q4

REPORT INFORMATION
  Report Type: 
  Country: None (occurrence: None)
  Receive Date: 20051213
  Receipt Date: 20050309
  Transmission Date: 20060501
  Serious: Yes (Hospitalization)
  Sender: FDA-Public Use
  Company Number: DE-KINGPHARMUSA00001-K200500341

PATIENT
  Age: 67 Year
  Sex: Female

DRUGS (6)
  1. ALTACE [Suspect]
     Indication: HYPERTENSION
     Dosage: 10 MG, QD
     Route: 048
     Dates: start: 20041001, end: 20041105
  2. CIPRAMIL [Suspect]
     Indication: DEPRESSION
     Dosage: 40 MG, QD
     Route: 048
     Dates: start: 20041001, end: 20041104
  3. CIPRAMIL [Suspect]
     Dosage: 20 MG, QD
     Route: 048
     Dates: start: 20041105, end: 20041109
  4. METOPROLOL [Suspect]
     Indication: HYPERTENSION
     Route: 048
     Dates: start: 20041001, end: 20041108
  5. METOPROLOL [Suspect]
     Dosage: 40 MG, UNK
     Route: 048
  6. ANTRA [Suspect]
     Indication: DUODENAL ULCER
     Dosage: 40 MG, QD
     Route: 048
     Dates: start: 20041001, end: 20041104

REACTIONS (7)
  - DEPRESSED LEVEL OF CONSCIOUSNESS [None]
  - DRUG INTERACTION [None]
  - HYPONATRAEMIA [None]
  - INAPPROPRIATE ANTIDIURETIC HORMONE SECRETION [None]
  - LETHARGY [None]
  - SOMNOLENCE [None]
  - STUPOR [None]
